FAERS Safety Report 4459390-6 (Version None)
Quarter: 2004Q3

REPORT INFORMATION
  Report Type: 
  Country: None (occurrence: None)
  Receive Date: 20040927
  Receipt Date: 20040915
  Transmission Date: 20050211
  Serious: Yes (Hospitalization)
  Sender: FDA-Public Use
  Company Number: PHHO2004JP13113

PATIENT
  Age: 75 Year
  Sex: Female
  Weight: 52 kg

DRUGS (7)
  1. DIOVAN [Suspect]
     Dosage: 80 MG, QD
     Route: 048
     Dates: start: 20030324, end: 20030610
  2. DIOVAN [Suspect]
     Dosage: 80 MG, BID
     Route: 048
     Dates: start: 20030611, end: 20031018
  3. DILTIAZEM HYDROCHLORIDE [Concomitant]
     Indication: HYPERTENSION
  4. CARVEDILOL [Concomitant]
     Indication: HYPERTENSION
  5. FRANDOL [Concomitant]
     Indication: ANGINA PECTORIS
  6. LASIX [Concomitant]
     Indication: CARDIAC FAILURE CONGESTIVE
  7. UNIPHYL [Concomitant]

REACTIONS (6)
  - ABDOMINAL PAIN [None]
  - DIARRHOEA [None]
  - ENTEROCOLITIS [None]
  - HYDRONEPHROSIS [None]
  - NEPHROLITHIASIS [None]
  - RENAL STONE REMOVAL [None]
